FAERS Safety Report 7273775-4 (Version None)
Quarter: 2011Q1

REPORT INFORMATION
  Report Type: 
  Country: None (occurrence: None)
  Receive Date: 20110203
  Receipt Date: 20110126
  Transmission Date: 20110831
  Serious: Yes (Other)
  Sender: FDA-Public Use
  Company Number: US-AMGEN-USASP2011000536

PATIENT
  Age: 44 Year
  Sex: Female

DRUGS (2)
  1. ENBREL [Suspect]
     Indication: RHEUMATOID ARTHRITIS
     Dates: start: 20100801, end: 20101227
  2. ENBREL [Suspect]
     Dosage: 50 MG, QWK
     Dates: start: 20100801, end: 20101220

REACTIONS (3)
  - PRURITUS GENERALISED [None]
  - SKIN MASS [None]
  - NERVOUS SYSTEM DISORDER [None]
